FAERS Safety Report 4301507-8 (Version None)
Quarter: 2004Q1

REPORT INFORMATION
  Report Type: 
  Country: None (occurrence: None)
  Receive Date: 20040220
  Receipt Date: 20040220
  Transmission Date: 20041129
  Serious: Yes (Hospitalization)
  Sender: FDA-Public Use
  Company Number: None

PATIENT
  Age: 54 Year
  Sex: Female
  Weight: 81.6475 kg

DRUGS (11)
  1. CIPRO [Suspect]
     Indication: CELLULITIS
     Dosage: PO
     Route: 048
     Dates: start: 20031201, end: 20040101
  2. LEVAQUIN [Suspect]
     Dosage: IV
     Route: 042
  3. VANCOMYCIN [Suspect]
     Dosage: IV
     Route: 042
  4. UNASYN [Suspect]
     Dosage: IV
     Route: 042
  5. ZYVOX [Suspect]
     Dosage: IV
     Route: 042
  6. LEVOXYL [Concomitant]
  7. VIT B12 [Concomitant]
  8. PROTONIX [Concomitant]
  9. KCL TAB [Concomitant]
  10. PREDNISONE [Concomitant]
  11. NORVASC [Concomitant]

REACTIONS (2)
  - RASH [None]
  - STEVENS-JOHNSON SYNDROME [None]
